FAERS Safety Report 23302596 (Version 1)
Quarter: 2023Q4

REPORT INFORMATION
  Report Type: Spontaneous
  Country: CN (occurrence: CN)
  Receive Date: 20231215
  Receipt Date: 20231215
  Transmission Date: 20240109
  Serious: Yes (Life-Threatening, Hospitalization, Other)
  Sender: FDA-Public Use
  Company Number: CN-PFIZER INC-PV202300201404

PATIENT
  Age: 62 Year
  Sex: Male
  Weight: 67.5 kg

DRUGS (5)
  1. CYTARABINE [Suspect]
     Active Substance: CYTARABINE
     Indication: Acute myeloid leukaemia
     Dosage: 75 MG, 2X/DAY
     Route: 041
     Dates: start: 20231104, end: 20231111
  2. DAUNORUBICIN HYDROCHLORIDE [Suspect]
     Active Substance: DAUNORUBICIN HYDROCHLORIDE
     Indication: Acute myeloid leukaemia
     Dosage: 60 MG, 1X/DAY
     Route: 041
     Dates: start: 20231104, end: 20231107
  3. VENETOCLAX [Suspect]
     Active Substance: VENETOCLAX
     Indication: Acute myeloid leukaemia
     Dosage: 100 MG, 1X/DAY
     Route: 048
     Dates: start: 20231104, end: 20231104
  4. VENETOCLAX [Suspect]
     Active Substance: VENETOCLAX
     Dosage: 200 MG, 1X/DAY
     Route: 048
     Dates: start: 20231105, end: 20231105
  5. VENETOCLAX [Suspect]
     Active Substance: VENETOCLAX
     Dosage: 400 MG, 1X/DAY
     Route: 048
     Dates: start: 20231106, end: 20231115

REACTIONS (14)
  - Myelosuppression [Recovering/Resolving]
  - Pyrexia [Recovering/Resolving]
  - Temperature intolerance [Unknown]
  - Hyperpyrexia [Unknown]
  - Rash [Recovering/Resolving]
  - Lung disorder [Recovering/Resolving]
  - Emphysema [Recovering/Resolving]
  - Pleural thickening [Recovering/Resolving]
  - Hepatic lesion [Recovering/Resolving]
  - Renal disorder [Recovering/Resolving]
  - Effusion [Recovering/Resolving]
  - Benign prostatic hyperplasia [Recovering/Resolving]
  - Prostatic calcification [Recovering/Resolving]
  - Chills [Recovering/Resolving]

NARRATIVE: CASE EVENT DATE: 20231117
